FAERS Safety Report 7909354-2 (Version None)
Quarter: 2011Q4

REPORT INFORMATION
  Report Type: 
  Country: None (occurrence: None)
  Receive Date: 20111111
  Receipt Date: 20110921
  Transmission Date: 20120403
  Serious: Yes (Death, Hospitalization)
  Sender: FDA-Public Use
  Company Number: US-ELI_LILLY_AND_COMPANY-US201002004678

PATIENT
  Sex: Male
  Weight: 90.703 kg

DRUGS (9)
  1. PEMETREXED [Suspect]
     Indication: NON-SMALL CELL LUNG CANCER
     Dosage: 1074 MG, UNK
     Route: 042
     Dates: start: 20081216, end: 20081216
  2. MAGNESIUM HYDROXIDE [Concomitant]
     Dosage: 30 ML, AS NEEDED
  3. DILAUDID [Concomitant]
     Indication: BONE PAIN
     Dosage: UNK, AS NEEDED
     Route: 048
  4. DEXAMETHASONE [Concomitant]
     Dosage: 0.5 MG, 2/D
     Route: 048
  5. BISACODYL [Concomitant]
     Dosage: 10 MG, AS NEEDED
  6. CEPHALEXIN [Concomitant]
     Dosage: 500 MG, EVERY 6 HRS
  7. VICODIN [Concomitant]
     Indication: BONE PAIN
  8. FOLIC ACID [Concomitant]
     Dosage: 1 MG, DAILY (1/D)
  9. MORPHINE [Concomitant]
     Indication: BONE PAIN
     Dosage: 60 MG, 2/D
     Route: 048

REACTIONS (5)
  - VOMITING [None]
  - DEHYDRATION [None]
  - DYSPHAGIA [None]
  - ATRIAL FLUTTER [None]
  - DECREASED APPETITE [None]
